FAERS Safety Report 15169984 (Version 2)
Quarter: 2018Q4

REPORT INFORMATION
  Report Type: Spontaneous
  Country: CA (occurrence: CA)
  Receive Date: 20180720
  Receipt Date: 20181025
  Transmission Date: 20190204
  Serious: Yes (Other)
  Sender: FDA-Public Use
  Company Number: CA-ALKEM LABORATORIES LIMITED-CA-ALKEM-2018-03813

PATIENT
  Age: 52 Year
  Sex: Male

DRUGS (2)
  1. GATIFLOXACIN. [Suspect]
     Active Substance: GATIFLOXACIN
     Indication: LUNG INFECTION
     Dosage: UNK
     Route: 065
  2. LINEZOLID. [Suspect]
     Active Substance: LINEZOLID
     Indication: LUNG INFECTION
     Dosage: UNK
     Route: 065

REACTIONS (5)
  - Transferrin saturation increased [Unknown]
  - Aplasia pure red cell [Recovered/Resolved]
  - Haemoglobin decreased [Unknown]
  - Reticulocytopenia [Unknown]
  - Blood iron increased [Unknown]
